FAERS Safety Report 8555905 (Version 2)
Quarter: 2012Q4

REPORT INFORMATION
  Report Type: 
  Country: US (occurrence: US)
  Receive Date: 20120510
  Receipt Date: 20120917
  Transmission Date: 20130627
  Serious: Yes (Hospitalization, Other)
  Sender: FDA-Public Use
  Company Number: US-BAYER-2012-044332

PATIENT
  Age: 39 Year
  Sex: Female
  Weight: 84.81 kg

DRUGS (54)
  1. OCELLA [Suspect]
     Indication: MENSTRUAL DISORDER
     Dosage: UNK
     Dates: start: 200901, end: 200905
  2. OCELLA [Suspect]
     Indication: CONTRACEPTION
  3. OCELLA [Suspect]
     Indication: PREMENSTRUAL SYNDROME
  4. PRISTIQUE [Concomitant]
     Dosage: 50 mg, UNK
     Route: 048
     Dates: start: 20090216
  5. SULFAMETHOXAZOLE W/TRIMETHOPRIM [Concomitant]
     Dosage: UNK
     Route: 048
     Dates: start: 20090220
  6. SULFAMETHOXAZOLE W/TRIMETHOPRIM [Concomitant]
     Dosage: UNK
     Dates: start: 2003
  7. SULFAMETHOXAZOLE W/TRIMETHOPRIM [Concomitant]
     Dosage: UNK
     Dates: start: 2009
  8. SULFAMETHOXAZOLE W/TRIMETHOPRIM [Concomitant]
     Dosage: UNK
     Dates: start: 2010
  9. PROVIGIL [Concomitant]
     Dosage: 100 mg, UNK
     Route: 048
     Dates: start: 20090220, end: 20090312
  10. METHYLPREDNISOLON [Concomitant]
     Dosage: 4 mg, UNK
     Route: 048
     Dates: start: 20090227
  11. TUSSIONEX PENNKINETIC [Concomitant]
     Dosage: UNK
     Route: 048
     Dates: start: 20090227
  12. LORAZEPAM [Concomitant]
     Dosage: 1 mg, UNK
     Route: 048
     Dates: start: 20090414
  13. LORAZEPAM [Concomitant]
     Dosage: UNK
     Dates: start: 2012
  14. LORAZEPAM [Concomitant]
     Dosage: UNK
     Dates: start: 2011
  15. LORAZEPAM [Concomitant]
     Dosage: UNK
     Dates: start: 2009
  16. LORAZEPAM [Concomitant]
     Dosage: UNK
     Dates: start: 2006
  17. LORAZEPAM [Concomitant]
     Dosage: UNK
     Dates: start: 2010
  18. NABUMETONE [Concomitant]
     Indication: MULTIPLE SCLEROSIS
     Dosage: 500 mg, UNK
     Route: 048
     Dates: start: 20090330, end: 20090426
  19. NABUMETONE [Concomitant]
     Indication: MULTIPLE SCLEROSIS
     Dosage: UNK
     Dates: start: 2009
  20. MAXALT [Concomitant]
     Indication: MIGRAINE
     Dosage: 10 mg, UNK
     Route: 048
  21. MAXALT [Concomitant]
     Indication: MIGRAINE
     Dosage: UNK
     Dates: start: 2007
  22. SERTRALINE HYDROCHLORIDE [Concomitant]
     Dosage: 100 mg, UNK
     Route: 048
     Dates: start: 20090429
  23. ACYCLOVIR [ACICLOVIR] [Concomitant]
     Indication: GENITAL HERPES
     Dosage: 200 mg, UNK
     Route: 048
     Dates: start: 20090429, end: 20090805
  24. ACYCLOVIR [ACICLOVIR] [Concomitant]
     Indication: GENITAL HERPES
     Dosage: UNK
     Dates: start: 2001, end: 2011
  25. HALFLYTELY-BISOCODYL [Concomitant]
     Dosage: UNK
     Dates: start: 20090429
  26. BUPROPION HCL XL [Concomitant]
     Dosage: 300 mg, UNK
     Route: 048
     Dates: start: 20090430
  27. BUPROPION HCL XL [Concomitant]
     Dosage: 150 mg, UNK
     Route: 048
     Dates: start: 20090430
  28. CLONAZEPAM [Concomitant]
     Indication: SLEEP DISORDER THERAPY
     Dosage: 0.5 mg, UNK
     Route: 048
     Dates: start: 20090430
  29. CLONAZEPAM [Concomitant]
     Indication: SLEEP DISORDER THERAPY
     Dosage: UNK
     Dates: start: 2006, end: 2009
  30. NEXIUM [Concomitant]
     Indication: GASTROOESOPHAGEAL REFLUX DISEASE
     Dosage: 40 mg, UNK
     Route: 048
     Dates: start: 20090504
  31. NEXIUM [Concomitant]
     Indication: GASTROOESOPHAGEAL REFLUX DISEASE
     Dosage: UNK
     Dates: start: 2009, end: 2010
  32. TYLENOL [PARACETAMOL] [Concomitant]
     Indication: HEADACHE
     Dosage: UNK
     Route: 048
     Dates: start: 20090507
  33. NASONEX [Concomitant]
     Dosage: 1 spray each nostril BID
     Route: 055
     Dates: start: 20090507
  34. CLOTRIMAZOLE [Concomitant]
     Dosage: UNK
     Dates: start: 2009, end: 2012
  35. ISOMETH-D CHLORAPHENZ [Concomitant]
     Dosage: UNK
     Dates: start: 2009
  36. NSAID^S [Concomitant]
     Dosage: UNK
     Dates: start: 2002
  37. NSAID^S [Concomitant]
     Dosage: UNK
     Dates: start: 2003
  38. NSAID^S [Concomitant]
     Dosage: UNK
     Dates: start: 2004
  39. NSAID^S [Concomitant]
     Dosage: UNK
     Dates: start: 2005
  40. NSAID^S [Concomitant]
     Dosage: UNK
     Dates: start: 2006
  41. NSAID^S [Concomitant]
     Dosage: UNK
     Dates: start: 2010
  42. BUPROPION HCL XL/WELLBUTRIN [Concomitant]
     Indication: DEPRESSION
     Dosage: UNK
     Dates: start: 2003
  43. LIPITOR [Concomitant]
     Indication: BLOOD CHOLESTEROL INCREASED
     Dosage: UNK
     Dates: start: 2003, end: 2005
  44. MELOXICAM [Concomitant]
     Indication: ANALGESIC THERAPY
  45. PANTOPRAZOLE-GERD [Concomitant]
     Dosage: UNK
     Dates: start: 2008, end: 2009
  46. PANTOPRAZOLE-GERD [Concomitant]
     Dosage: UNK
     Dates: start: 2011
  47. SERTRALINE/ZOLOFT [Concomitant]
     Indication: DEPRESSION
     Dosage: UNK
     Dates: start: 2004, end: 2009
  48. WELLBUTRIN XL [Concomitant]
  49. OMEPRAZOLE [Concomitant]
  50. MODAFINIL [Concomitant]
  51. MOMETASONE [Concomitant]
  52. PROTONIX [Concomitant]
  53. ATIVAN [Concomitant]
  54. BUPROPION [Concomitant]

REACTIONS (6)
  - Pulmonary embolism [None]
  - Deep vein thrombosis [None]
  - Injury [None]
  - Pain [None]
  - Emotional distress [None]
  - Dyspnoea [None]
